FAERS Safety Report 18785193 (Version 4)
Quarter: 2021Q1

REPORT INFORMATION
  Report Type: Report from Study
  Country: US (occurrence: US)
  Receive Date: 20210125
  Receipt Date: 20210331
  Transmission Date: 20210419
  Serious: Yes (Hospitalization, Other)
  Sender: FDA-Public Use
  Company Number: US-MALLINCKRODT-T202100143

PATIENT
  Sex: Female

DRUGS (2)
  1. REPOSITORY CORTICOTROPIN INJECTION [Suspect]
     Active Substance: CORTICOTROPIN
     Indication: POLYMYOSITIS
     Dosage: 80 UNITS, TWICE A WEEK
     Route: 030
     Dates: start: 2015
  2. REPOSITORY CORTICOTROPIN INJECTION [Suspect]
     Active Substance: CORTICOTROPIN
     Dosage: 40 UNITS, UNK
     Route: 065

REACTIONS (14)
  - Nausea [Unknown]
  - Headache [Not Recovered/Not Resolved]
  - Cyst [Unknown]
  - Chest pain [Unknown]
  - Skin disorder [Unknown]
  - Tumour excision [Unknown]
  - Scar [Not Recovered/Not Resolved]
  - Neoplasm [Unknown]
  - Cyst removal [Unknown]
  - Blood pressure fluctuation [Unknown]
  - Blood pressure increased [Not Recovered/Not Resolved]
  - Pain in extremity [Not Recovered/Not Resolved]
  - Visual impairment [Not Recovered/Not Resolved]
  - Muscular weakness [Unknown]

NARRATIVE: CASE EVENT DATE: 2021
